FAERS Safety Report 9284444 (Version 2)
Quarter: 2013Q2

REPORT INFORMATION
  Report Type: Spontaneous
  Country: BE (occurrence: BE)
  Receive Date: 20130510
  Receipt Date: 20130613
  Transmission Date: 20140414
  Serious: Yes (Hospitalization)
  Sender: FDA-Public Use
  Company Number: BE-GILEAD-2013-0074898

PATIENT
  Sex: Male

DRUGS (2)
  1. VIREAD [Suspect]
     Indication: HEPATITIS B
     Dosage: UNK
  2. VIREAD [Suspect]
     Dosage: UNK

REACTIONS (3)
  - Hepatic cirrhosis [Unknown]
  - Hepatitis [Unknown]
  - Diarrhoea [Unknown]
